FAERS Safety Report 11940748 (Version 2)
Quarter: 2016Q1

REPORT INFORMATION
  Report Type: Spontaneous
  Country: US (occurrence: US)
  Receive Date: 20160122
  Receipt Date: 20160130
  Transmission Date: 20160526
  Serious: No
  Sender: FDA-Public Use
  Company Number: PHEH2016US001604

PATIENT
  Sex: Male

DRUGS (1)
  1. SANDOSTATIN LAR DEPOT [Suspect]
     Active Substance: OCTREOTIDE ACETATE
     Indication: CARCINOID SYNDROME
     Dosage: 40 MG, QMO (OR 2 X 20 MG))
     Route: 030
     Dates: start: 201406

REACTIONS (4)
  - Diarrhoea [Unknown]
  - Malaise [Unknown]
  - Therapeutic response decreased [Unknown]
  - Flushing [Unknown]
